FAERS Safety Report 6905473-8 (Version None)
Quarter: 2010Q3

REPORT INFORMATION
  Report Type: 
  Country: None (occurrence: None)
  Receive Date: 20100804
  Receipt Date: 20100721
  Transmission Date: 20110219
  Serious: Yes (Other)
  Sender: FDA-Public Use
  Company Number: BR-MEDIMMUNE-MEDI-0011205

PATIENT
  Sex: Female
  Weight: 5.13 kg

DRUGS (5)
  1. SYNAGIS [Suspect]
     Indication: CARDIAC DISORDER
     Route: 030
     Dates: start: 20100301, end: 20100401
  2. SYNAGIS [Suspect]
     Route: 030
     Dates: start: 20100501, end: 20100723
  3. PROPRANOLOL [Concomitant]
     Dosage: 1 TABLET DISSOLVED IN 10 ML
     Route: 048
  4. FERROUS SULFATE [Concomitant]
     Route: 048
     Dates: start: 20100301
  5. VITAMIN AD [Concomitant]
     Indication: VITAMIN SUPPLEMENTATION
     Route: 048
     Dates: start: 20100301

REACTIONS (1)
  - ANAEMIA [None]
